FAERS Safety Report 22364708 (Version 2)
Quarter: 2024Q4

REPORT INFORMATION
  Report Type: Spontaneous
  Country: AU (occurrence: AU)
  Receive Date: 20230525
  Receipt Date: 20241217
  Transmission Date: 20250114
  Serious: Yes (Hospitalization, Other)
  Sender: BOEHRINGER INGELHEIM
  Company Number: AU-BoehringerIngelheim-2023-BI-238579

PATIENT
  Age: 66 Year
  Sex: Male

DRUGS (9)
  1. JARDIANCE [Suspect]
     Active Substance: EMPAGLIFLOZIN
     Indication: Product used for unknown indication
  2. LITHIUM [Suspect]
     Active Substance: LITHIUM
     Indication: Product used for unknown indication
     Dosage: FOR NEARLY 20 YEARS WITH NO RECENT CHANGE OF DOSE
     Route: 065
  3. LITHIUM [Suspect]
     Active Substance: LITHIUM
     Dosage: UNK (RE-STARTED AT HALF THE USUAL DOSE)
     Route: 065
  4. METFORMIN [Suspect]
     Active Substance: METFORMIN HYDROCHLORIDE
     Indication: Product used for unknown indication
     Route: 065
  5. OLMESARTAN MEDOXOMIL [Suspect]
     Active Substance: OLMESARTAN MEDOXOMIL
     Indication: Product used for unknown indication
     Route: 065
  6. ROSUVASTATIN [Suspect]
     Active Substance: ROSUVASTATIN
     Indication: Product used for unknown indication
  7. VENLAFAXINE [Suspect]
     Active Substance: VENLAFAXINE HYDROCHLORIDE
     Indication: Product used for unknown indication
  8. ARIPIPRAZOLE [Suspect]
     Active Substance: ARIPIPRAZOLE
     Indication: Product used for unknown indication
  9. MIRTAZAPINE [Suspect]
     Active Substance: MIRTAZAPINE
     Indication: Product used for unknown indication
     Route: 065

REACTIONS (11)
  - Acute kidney injury [Recovering/Resolving]
  - Nephrogenic diabetes insipidus [Unknown]
  - Pneumonia [Unknown]
  - Toxicity to various agents [Recovering/Resolving]
  - Ileus [Unknown]
  - Neurotoxicity [Unknown]
  - Hypovolaemia [Unknown]
  - Metabolic acidosis [Unknown]
  - Toxicity to various agents [Unknown]
  - Hypernatraemia [Unknown]
  - Pneumonia [Unknown]
